FAERS Safety Report 16329319 (Version 1)
Quarter: 2019Q2

REPORT INFORMATION
  Report Type: Spontaneous
  Country: US (occurrence: US)
  Receive Date: 20190520
  Receipt Date: 20190520
  Transmission Date: 20190711
  Serious: No
  Sender: FDA-Public Use
  Company Number: US-LUPIN PHARMACEUTICALS INC.-2019-01915

PATIENT
  Age: 47 Year
  Sex: Female
  Weight: 48.07 kg

DRUGS (2)
  1. QUETIAPINE TABLETS USP, 100 MG [Suspect]
     Active Substance: QUETIAPINE
     Indication: ANXIETY
  2. QUETIAPINE TABLETS USP, 100 MG [Suspect]
     Active Substance: QUETIAPINE
     Indication: DEPRESSION
     Dosage: 100 MILLIGRAM, QD
     Route: 048
     Dates: start: 20190208

REACTIONS (2)
  - Toothache [Not Recovered/Not Resolved]
  - Oral discomfort [Not Recovered/Not Resolved]

NARRATIVE: CASE EVENT DATE: 20190308
